FAERS Safety Report 11650136 (Version 1)
Quarter: 2015Q4

REPORT INFORMATION
  Report Type: Spontaneous
  Country: US (occurrence: US)
  Receive Date: 20151021
  Receipt Date: 20151021
  Transmission Date: 20160304
  Serious: No
  Sender: FDA-Public Use
  Company Number: US-TARO-2015TAR00287

PATIENT
  Sex: Female

DRUGS (3)
  1. ENALAPRIL MALEATE AND HYDROCHLOROTHIAZIDE TABLETS USP 5/12.5MG [Suspect]
     Active Substance: ENALAPRIL MALEATE\HYDROCHLOROTHIAZIDE
     Indication: HYPERTENSION
     Dosage: 1 TABLETS, 1X/DAY
     Route: 048
  2. MOTRIN [Concomitant]
     Active Substance: IBUPROFEN
     Dosage: 800 MG, AS NEEDED
  3. LEVOTHYROXINE. [Concomitant]
     Active Substance: LEVOTHYROXINE
     Dosage: 50 ?G, 1X/DAY

REACTIONS (7)
  - Reaction to drug excipients [Recovered/Resolved]
  - Cardiac disorder [None]
  - Lethargy [Recovered/Resolved]
  - Asthenia [Recovered/Resolved]
  - Stress [Not Recovered/Not Resolved]
  - Fatigue [Recovered/Resolved]
  - Dyspnoea [Recovered/Resolved]

NARRATIVE: CASE EVENT DATE: 2011
